FAERS Safety Report 5454184-7 (Version None)
Quarter: 2007Q3

REPORT INFORMATION
  Report Type: 
  Country: None (occurrence: None)
  Receive Date: 20070917
  Receipt Date: 20070531
  Transmission Date: 20080115
  Serious: Yes (Hospitalization)
  Sender: FDA-Public Use
  Company Number: US-ASTRAZENECA-2006UW11299

PATIENT
  Age: 534 Month
  Sex: Female
  Weight: 103.6 kg

DRUGS (3)
  1. SEROQUEL [Suspect]
     Indication: SLEEP DISORDER
     Route: 048
     Dates: start: 20000101
  2. HALDOL [Concomitant]
     Dates: start: 20001001
  3. RISPERDAL [Concomitant]
     Dates: start: 20020101, end: 20040101

REACTIONS (1)
  - DIABETES MELLITUS [None]
